FAERS Safety Report 5033774-X (Version None)
Quarter: 2006Q2

REPORT INFORMATION
  Report Type: 
  Country: None (occurrence: None)
  Receive Date: 20060620
  Receipt Date: 19910430
  Transmission Date: 20061013
  Serious: Yes (Other)
  Sender: FDA-Public Use
  Company Number: 200612450GDS

PATIENT
  Age: 33 Year
  Sex: Male
  Weight: 85 kg

DRUGS (3)
  1. TRASYLOL [Suspect]
     Indication: AORTIC VALVE DISEASE
     Dosage: 2500000 U, TOTAL DAILY
     Dates: start: 19910430
  2. TRASYLOL [Suspect]
     Indication: CARDIAC OPERATION
     Dosage: 2500000 U, TOTAL DAILY
     Dates: start: 19910430
  3. TRASYLOL [Suspect]
     Indication: MITRAL VALVE DISEASE MIXED
     Dosage: 2500000 U, TOTAL DAILY
     Dates: start: 19910430

REACTIONS (3)
  - HAEMOLYSIS [None]
  - HYPERSENSITIVITY [None]
  - RHABDOMYOLYSIS [None]
